FAERS Safety Report 20794192 (Version 1)
Quarter: 2022Q2

REPORT INFORMATION
  Report Type: Spontaneous
  Country: FR (occurrence: FR)
  Receive Date: 20220506
  Receipt Date: 20220506
  Transmission Date: 20220721
  Serious: Yes (Hospitalization, Other)
  Sender: FDA-Public Use
  Company Number: FR-AFSSAPS-MA20221781

PATIENT
  Age: 55 Year
  Sex: Female

DRUGS (1)
  1. ROSUVASTATIN [Suspect]
     Active Substance: ROSUVASTATIN
     Indication: Prophylaxis
     Dosage: 5 MILLIGRAM, ONCE A DAY
     Route: 048
     Dates: start: 2019

REACTIONS (1)
  - Autoimmune myositis [Recovering/Resolving]

NARRATIVE: CASE EVENT DATE: 20220413
